FAERS Safety Report 6198685-5 (Version None)
Quarter: 2009Q2

REPORT INFORMATION
  Report Type: 
  Country: None (occurrence: None)
  Receive Date: 20090519
  Receipt Date: 20090519
  Transmission Date: 20091009
  Serious: No
  Sender: FDA-Public Use
  Company Number: None

PATIENT
  Age: 49 Year
  Sex: Female

DRUGS (3)
  1. LISINOPRIL [Suspect]
     Indication: HYPERTENSION
     Dosage: 1 TABLET Q DAY 047
     Dates: start: 20090301
  2. IBUPROFEN [Concomitant]
  3. FLONASE [Concomitant]

REACTIONS (3)
  - DIZZINESS [None]
  - PRODUCT SOLUBILITY ABNORMAL [None]
  - PRODUCT SUBSTITUTION ISSUE [None]
